FAERS Safety Report 5035326-4 (Version None)
Quarter: 2006Q2

REPORT INFORMATION
  Report Type: 
  Country: None (occurrence: None)
  Receive Date: 20060622
  Receipt Date: 20060622
  Transmission Date: 20061013
  Serious: Yes (Congenital Anomaly)
  Sender: FDA-Public Use
  Company Number: None

PATIENT
  Sex: Female
  Weight: 55 kg

DRUGS (1)
  1. ISOTRETINOIN SHANGHAI SINE WANXIANG [Suspect]
     Indication: ACNE
     Dosage: 10 MG PER TIME 2 TIMES A DAY TOTAL: 7 DAYS
     Dates: start: 20060118, end: 20060125

REACTIONS (2)
  - ADVERSE DRUG REACTION [None]
  - DRUG INTOLERANCE [None]
